FAERS Safety Report 20942252 (Version 1)
Quarter: 2022Q2

REPORT INFORMATION
  Report Type: Spontaneous
  Country: SE (occurrence: SE)
  Receive Date: 20220610
  Receipt Date: 20220610
  Transmission Date: 20220721
  Serious: Yes (Other)
  Sender: FDA-Public Use
  Company Number: SE-NOVOPROD-924791

PATIENT
  Age: 28 Year
  Sex: Female

DRUGS (1)
  1. RYBELSUS [Suspect]
     Active Substance: SEMAGLUTIDE
     Indication: Type 2 diabetes mellitus
     Dosage: 14 MG, QD
     Route: 065

REACTIONS (4)
  - Abortion induced [Recovered/Resolved]
  - Pregnancy on oral contraceptive [Unknown]
  - Diarrhoea [Unknown]
  - Maternal exposure during pregnancy [Recovered/Resolved]
